FAERS Safety Report 4443308-6 (Version None)
Quarter: 2004Q3

REPORT INFORMATION
  Report Type: 
  Country: None (occurrence: None)
  Receive Date: 20040901
  Receipt Date: 20040830
  Transmission Date: 20050211
  Serious: Yes (Hospitalization, Other)
  Sender: FDA-Public Use
  Company Number: KII-2001-0007862

PATIENT
  Sex: Female

DRUGS (2)
  1. OXYCONTIN [Suspect]
     Indication: PAIN
  2. DILAUDID [Suspect]
     Indication: PAIN

REACTIONS (5)
  - BACK PAIN [None]
  - CARDIAC ARREST [None]
  - INADEQUATE ANALGESIA [None]
  - MEDICATION ERROR [None]
  - RESPIRATORY DEPRESSION [None]
